FAERS Safety Report 14756115 (Version 1)
Quarter: 2018Q2

REPORT INFORMATION
  Report Type: Spontaneous
  Country: FR (occurrence: FR)
  Receive Date: 20180413
  Receipt Date: 20180413
  Transmission Date: 20180711
  Serious: Yes (Congenital Anomaly)
  Sender: FDA-Public Use
  Company Number: FR-BIOVITRUM-2018FR0373

PATIENT
  Age: 0 Day
  Sex: Male
  Weight: 3.23 kg

DRUGS (5)
  1. KINERET [Suspect]
     Active Substance: ANAKINRA
     Route: 064
     Dates: start: 20160624, end: 20170314
  2. CORTANCYL [Suspect]
     Active Substance: PREDNISONE
     Indication: STILL^S DISEASE
     Route: 064
     Dates: start: 20160624, end: 20170314
  3. UVEDOSE 100 000 UI [Suspect]
     Active Substance: CHOLECALCIFEROL
     Indication: PRODUCT USED FOR UNKNOWN INDICATION
     Route: 064
     Dates: start: 20160624, end: 20170314
  4. DIFFU K [Suspect]
     Active Substance: POTASSIUM CHLORIDE
     Indication: PRODUCT USED FOR UNKNOWN INDICATION
     Route: 064
     Dates: start: 20160624, end: 20170314
  5. ACIDE FOLIQUE [Suspect]
     Active Substance: FOLIC ACID
     Indication: PRODUCT USED FOR UNKNOWN INDICATION
     Route: 064
     Dates: start: 20160624, end: 20170314

REACTIONS (2)
  - Foetal exposure during pregnancy [Recovered/Resolved]
  - Inguinal hernia [Recovered/Resolved]

NARRATIVE: CASE EVENT DATE: 20170314
